FAERS Safety Report 21436960 (Version 1)
Quarter: 2022Q4

REPORT INFORMATION
  Report Type: Other
  Country: IT (occurrence: IT)
  Receive Date: 20221010
  Receipt Date: 20221010
  Transmission Date: 20230112
  Serious: Yes (Other)
  Sender: FDA-Public Use
  Company Number: IT-002147023-NVSC2022IT220169

PATIENT
  Age: 54 Year
  Sex: Female

DRUGS (1)
  1. RITUXIMAB [Suspect]
     Active Substance: RITUXIMAB
     Indication: Sjogren^s syndrome
     Dosage: 1000 MG, ON DAY 1 AND DAY 15 TO COMPLETE A SINGLE COURSE OF THERAPY
     Route: 065

REACTIONS (3)
  - Pyelonephritis [Unknown]
  - Hypogammaglobulinaemia [Unknown]
  - Off label use [Unknown]
